FAERS Safety Report 10090318 (Version 2)
Quarter: 2014Q4

REPORT INFORMATION
  Report Type: Spontaneous
  Country: US (occurrence: None)
  Receive Date: 20140411
  Receipt Date: 20141015
  Transmission Date: 20150528
  Serious: Yes (Other)
  Sender: FDA-Public Use
  Company Number: 2014US002958

PATIENT
  Age: 60 Year
  Sex: Male

DRUGS (16)
  1. MAG OXIDE (MAGNESIUM OXIDE) [Concomitant]
  2. TRAZODONE [Concomitant]
     Active Substance: TRAZODONE HYDROCHLORIDE
  3. OXYCODONE (OXYCODONE) [Concomitant]
     Active Substance: OXYCODONE
  4. ACYCLOVIR (ACYCLOVIR) [Concomitant]
     Active Substance: ACYCLOVIR
  5. BACTRIM (SULFAMETHOXAZOLE, TRIMETHOPRIM) [Concomitant]
  6. FLUCONAZOLE (FLUCONAZOLE) [Concomitant]
     Active Substance: FLUCONAZOLE
  7. URSODIOL (URSODIOL) [Concomitant]
  8. ICLUSIG [Suspect]
     Active Substance: PONATINIB
     Indication: CHRONIC MYELOID LEUKAEMIA
     Route: 048
     Dates: start: 20130816
  9. ACETAMINOPHEN (ACETAMINOPHEN) [Concomitant]
     Active Substance: ACETAMINOPHEN
  10. AMLODIPINE [Concomitant]
     Active Substance: AMLODIPINE BESYLATE
  11. CYCLOSPORINE (CYCLOSPORINE) [Concomitant]
  12. PRILOSEC (OMEPRAZOLE) [Concomitant]
     Active Substance: OMEPRAZOLE MAGNESIUM
  13. CARVEDILOL (CARVEDILOL) [Concomitant]
     Active Substance: CARVEDILOL
  14. PREDNISONE (PREDNISONE) [Concomitant]
     Active Substance: PREDNISONE
  15. LORAZEPAM (LORAZEPAM) [Concomitant]
     Active Substance: LORAZEPAM
  16. FLEXERIL [Concomitant]
     Active Substance: CYCLOBENZAPRINE HYDROCHLORIDE

REACTIONS (1)
  - Pancytopenia [None]

NARRATIVE: CASE EVENT DATE: 20131016
